FAERS Safety Report 12701791 (Version 1)
Quarter: 2016Q3

REPORT INFORMATION
  Report Type: Spontaneous
  Country: US (occurrence: None)
  Receive Date: 20160830
  Receipt Date: 20160830
  Transmission Date: 20161109
  Serious: Yes (Hospitalization)
  Sender: FDA-Public Use
  Company Number: None

PATIENT
  Age: 59 Year
  Sex: Male
  Weight: 123 kg

DRUGS (2)
  1. LEUPROLIDE ACETATE. [Suspect]
     Active Substance: LEUPROLIDE ACETATE
     Dates: end: 20160407
  2. CASODEX [Suspect]
     Active Substance: BICALUTAMIDE
     Dates: end: 20160408

REACTIONS (2)
  - Small intestinal obstruction [None]
  - Abdominal adhesions [None]

NARRATIVE: CASE EVENT DATE: 20160501
